FAERS Safety Report 11791322 (Version 2)
Quarter: 2018Q4

REPORT INFORMATION
  Report Type: Spontaneous
  Country: US (occurrence: US)
  Receive Date: 20151201
  Receipt Date: 20181203
  Transmission Date: 20190204
  Serious: Yes (Other)
  Sender: FDA-Public Use
  Company Number: US-PFIZER INC-2015407291

PATIENT
  Age: 82 Year
  Sex: Male
  Weight: 127.1 kg

DRUGS (1)
  1. REVATIO [Suspect]
     Active Substance: SILDENAFIL CITRATE
     Indication: PULMONARY HYPERTENSION
     Dosage: 20 MG, 3X/DAY (90 DAY SUPPLY)
     Route: 048
     Dates: start: 201302

REACTIONS (2)
  - Condition aggravated [Not Recovered/Not Resolved]
  - Deafness bilateral [Not Recovered/Not Resolved]
